FAERS Safety Report 5928142-X (Version None)
Quarter: 2008Q4

REPORT INFORMATION
  Report Type: 
  Country: None (occurrence: None)
  Receive Date: 20081023
  Receipt Date: 20081016
  Transmission Date: 20090506
  Serious: Yes (Hospitalization)
  Sender: FDA-Public Use
  Company Number: NO-JNJFOC-20081004005

PATIENT
  Sex: Male

DRUGS (6)
  1. HALDOL [Suspect]
     Indication: DRUG USE FOR UNKNOWN INDICATION
     Route: 048
  2. HALDOL [Interacting]
     Indication: DRUG USE FOR UNKNOWN INDICATION
     Route: 030
  3. LEVOMEPROMAZINE [Interacting]
     Indication: AGITATION
     Route: 048
  4. LEVOMEPROMAZINE [Interacting]
     Indication: ANXIETY
     Route: 048
  5. LEVOMEPROMAZINE [Interacting]
     Indication: PSYCHOTIC DISORDER
     Route: 048
  6. SEROQUEL [Interacting]
     Indication: DRUG USE FOR UNKNOWN INDICATION
     Route: 048

REACTIONS (2)
  - DRUG INTERACTION [None]
  - NEUROLEPTIC MALIGNANT SYNDROME [None]
